FAERS Safety Report 12450561 (Version 1)
Quarter: 2016Q2

REPORT INFORMATION
  Report Type: Spontaneous
  Country: US (occurrence: None)
  Receive Date: 20160608
  Receipt Date: 20160608
  Transmission Date: 20160815
  Serious: Yes (Other)
  Sender: FDA-Public Use
  Company Number: None

PATIENT
  Age: 73 Year
  Sex: Male
  Weight: 115.21 kg

DRUGS (5)
  1. CRESTOR [Concomitant]
     Active Substance: ROSUVASTATIN CALCIUM
  2. DEGOXIN [Concomitant]
  3. WARFARIN [Concomitant]
     Active Substance: WARFARIN
  4. ELIQUIS [Suspect]
     Active Substance: APIXABAN
     Indication: COAGULOPATHY
     Route: 048
     Dates: start: 20160602
  5. HCTZ [Concomitant]
     Active Substance: HYDROCHLOROTHIAZIDE

REACTIONS (4)
  - Tremor [None]
  - Migraine [None]
  - Eye pain [None]
  - Therapy cessation [None]

NARRATIVE: CASE EVENT DATE: 20160602
